FAERS Safety Report 6544067-3 (Version None)
Quarter: 2010Q1

REPORT INFORMATION
  Report Type: 
  Country: None (occurrence: None)
  Receive Date: 20100119
  Receipt Date: 20100119
  Transmission Date: 20100710
  Serious: No
  Sender: FDA-Public Use
  Company Number: None

PATIENT
  Age: 30 Year
  Sex: Female
  Weight: 56.6996 kg

DRUGS (1)
  1. PROVIGIL [Suspect]
     Indication: ALTERED STATE OF CONSCIOUSNESS
     Dates: start: 20100109, end: 20100111

REACTIONS (4)
  - DECREASED APPETITE [None]
  - DIARRHOEA [None]
  - NAUSEA [None]
  - URTICARIA [None]
